FAERS Safety Report 5239447-2 (Version None)
Quarter: 2007Q1

REPORT INFORMATION
  Report Type: 
  Country: None (occurrence: None)
  Receive Date: 20070216
  Receipt Date: 20070206
  Transmission Date: 20070707
  Serious: Yes (Other)
  Sender: FDA-Public Use
  Company Number: CA-AVENTIS-200621509GDDC

PATIENT
  Age: 29 Year
  Sex: Male
  Weight: 70 kg

DRUGS (9)
  1. FLAGYL [Suspect]
     Route: 042
  2. FLAGYL [Suspect]
     Dosage: DOSE: UNK
     Route: 048
     Dates: start: 19990301, end: 19990101
  3. GENTAMICIN SULFATE [Suspect]
     Route: 042
  4. CIPROFLOXACIN HCL [Suspect]
     Route: 048
  5. AMPICILLIN [Suspect]
     Route: 042
  6. ANAESTHETICS [Concomitant]
     Route: 042
  7. ROPIVACAINE [Concomitant]
     Route: 008
  8. MORPHINE [Concomitant]
     Route: 030
  9. KETOROLAC TROMETHAMINE [Concomitant]
     Route: 030

REACTIONS (4)
  - ABDOMINAL PAIN [None]
  - DIARRHOEA [None]
  - PSEUDOMEMBRANOUS COLITIS [None]
  - PYREXIA [None]
